FAERS Safety Report 9056823 (Version 1)
Quarter: 2013Q1

REPORT INFORMATION
  Report Type: Spontaneous
  Country: US (occurrence: US)
  Receive Date: 20130201
  Receipt Date: 20130201
  Transmission Date: 20140127
  Serious: No
  Sender: FDA-Public Use
  Company Number: US-GALDERMA-US-GDP-12415251

PATIENT
  Age: 23 None
  Sex: Female

DRUGS (4)
  1. EPIDUO [Suspect]
     Indication: ACNE
     Dosage: UNKNOWN
     Route: 061
     Dates: start: 20120926, end: 20120929
  2. NATURAL FACE WASH [Concomitant]
     Indication: THERAPEUTIC SKIN CARE TOPICAL
     Route: 061
     Dates: start: 20120926
  3. SHEA BUTTER [Concomitant]
     Indication: THERAPEUTIC SKIN CARE TOPICAL
     Route: 061
     Dates: start: 20120927
  4. VITAMIN E [Concomitant]
     Route: 061
     Dates: start: 20121003

REACTIONS (6)
  - Telangiectasia [Not Recovered/Not Resolved]
  - Dry skin [Not Recovered/Not Resolved]
  - Skin burning sensation [Not Recovered/Not Resolved]
  - Erythema [Recovering/Resolving]
  - Pain of skin [Not Recovered/Not Resolved]
  - Self-medication [None]
